FAERS Safety Report 9173855 (Version 1)
Quarter: 2013Q1

REPORT INFORMATION
  Report Type: Spontaneous
  Country: US (occurrence: None)
  Receive Date: 20130318
  Receipt Date: 20130318
  Transmission Date: 20140127
  Serious: Yes (Disabling)
  Sender: FDA-Public Use
  Company Number: NSR_01059_2013

PATIENT
  Age: 42 Year
  Sex: Male

DRUGS (1)
  1. ALLOPURINOL [Suspect]
     Indication: HYPERURICAEMIA
     Dosage: (DF) (UNKNOWN UNTIL NOT CONTINUING)

REACTIONS (5)
  - Gouty tophus [None]
  - Hepatitis [None]
  - Drug hypersensitivity [None]
  - Drug ineffective [None]
  - Walking aid user [None]
